FAERS Safety Report 9080328 (Version 2)
Quarter: 2013Q3

REPORT INFORMATION
  Report Type: Spontaneous
  Country: JP (occurrence: JP)
  Receive Date: 20130130
  Receipt Date: 20130703
  Transmission Date: 20140515
  Serious: Yes (Life-Threatening, Other)
  Sender: FDA-Public Use
  Company Number: JP-ROCHE-1181848

PATIENT
  Age: 43 Year
  Sex: Male
  Weight: 83 kg

DRUGS (9)
  1. VESANOID [Suspect]
     Indication: ACUTE PROMYELOCYTIC LEUKAEMIA
     Dosage: 3 AND 3 AND 2 AT NIGHT IN DAYTIME IN MORNING
     Route: 048
     Dates: start: 20120730, end: 20120821
  2. IDAMYCIN [Concomitant]
     Indication: ACUTE PROMYELOCYTIC LEUKAEMIA
     Route: 042
     Dates: start: 20120731, end: 20120802
  3. CYLOCIDE [Concomitant]
     Indication: ACUTE PROMYELOCYTIC LEUKAEMIA
     Route: 042
     Dates: start: 20120731, end: 20120806
  4. POLYMIXIN E [Concomitant]
     Indication: INFECTION PROPHYLAXIS
     Route: 048
     Dates: start: 20120731, end: 20120917
  5. BAKTAR [Concomitant]
     Indication: INFECTION PROPHYLAXIS
     Route: 048
     Dates: start: 20120731, end: 20120917
  6. FLUCONAZOLE [Concomitant]
     Indication: INFECTION PROPHYLAXIS
     Route: 048
     Dates: start: 20120731, end: 20120917
  7. OMEPRAL [Concomitant]
     Indication: PROPHYLAXIS
     Route: 048
     Dates: start: 20120731
  8. IMIPENEM-CILASTATIN [Concomitant]
     Indication: ANTI-INFECTIVE THERAPY
     Route: 041
     Dates: start: 20120802, end: 20120829
  9. VANCOMYCIN [Concomitant]
     Indication: ANTI-INFECTIVE THERAPY
     Route: 041
     Dates: start: 20120802, end: 20120829

REACTIONS (3)
  - Tubulointerstitial nephritis [Recovering/Resolving]
  - IgA nephropathy [Not Recovered/Not Resolved]
  - Disseminated intravascular coagulation [Recovered/Resolved]
